FAERS Safety Report 5754033-3 (Version None)
Quarter: 2008Q2

REPORT INFORMATION
  Report Type: 
  Country: None (occurrence: None)
  Receive Date: 20080530
  Receipt Date: 20080519
  Transmission Date: 20081010
  Serious: Yes (Death, Hospitalization)
  Sender: FDA-Public Use
  Company Number: PHHO2008ES06375

PATIENT
  Sex: Female

DRUGS (13)
  1. NEORAL [Suspect]
     Indication: RENAL TRANSPLANT
     Dosage: 100 MG, BID
     Route: 048
     Dates: start: 20040921
  2. NEORAL [Suspect]
     Dosage: 125 MG, BID
     Route: 048
     Dates: start: 20041002
  3. NEORAL [Suspect]
     Dosage: 150 MG, TID
     Route: 048
  4. NEORAL [Suspect]
     Dosage: DECREASING FROM 100 MG BID TO 25 MG
     Route: 048
     Dates: start: 20041009, end: 20041021
  5. SANDIMMUNE [Suspect]
     Indication: RENAL TRANSPLANT
     Route: 042
     Dates: start: 20050112
  6. SANDIMMUNE [Suspect]
     Route: 042
     Dates: start: 20050112
  7. MYCOPHENOLATE MOFETIL [Suspect]
     Indication: RENAL TRANSPLANT
     Dosage: 1000 MG, BID
     Route: 048
     Dates: start: 20040921, end: 20050111
  8. PREDNISONE TAB [Suspect]
     Indication: RENAL TRANSPLANT
     Route: 048
     Dates: start: 20040922, end: 20050116
  9. RANUBER [Concomitant]
  10. FUROSEMIDE [Concomitant]
  11. ARANESP [Concomitant]
  12. OMEPRAZOLE [Concomitant]
  13. INSULIN [Concomitant]

REACTIONS (17)
  - AORTIC ARTERIOSCLEROSIS [None]
  - CHILLS [None]
  - COLITIS ISCHAEMIC [None]
  - COMPLICATIONS OF TRANSPLANTED KIDNEY [None]
  - DIARRHOEA [None]
  - DYSPNOEA [None]
  - ENTEROCOCCAL INFECTION [None]
  - ESCHERICHIA INFECTION [None]
  - LEUKOCYTOSIS [None]
  - OLIGURIA [None]
  - PLEURAL EFFUSION [None]
  - PYREXIA [None]
  - RENAL IMPAIRMENT [None]
  - SEPTIC SHOCK [None]
  - TACHYCARDIA [None]
  - UROSEPSIS [None]
  - VASCULAR CALCIFICATION [None]
